FAERS Safety Report 6978764-2 (Version None)
Quarter: 2010Q3

REPORT INFORMATION
  Report Type: 
  Country: None (occurrence: None)
  Receive Date: 20100913
  Receipt Date: 20100909
  Transmission Date: 20110219
  Serious: Yes (Hospitalization)
  Sender: FDA-Public Use
  Company Number: AU-ROCHE-725985

PATIENT
  Sex: Male

DRUGS (1)
  1. DIAZEPAM [Suspect]
     Indication: PRODUCT USED FOR UNKNOWN INDICATION
     Dosage: RECEIVED ONE TIME
     Route: 048

REACTIONS (4)
  - CHEST DISCOMFORT [None]
  - HOSPITALISATION [None]
  - MIGRAINE [None]
  - MUSCULOSKELETAL PAIN [None]
